FAERS Safety Report 4885374-X (Version None)
Quarter: 2005Q4

REPORT INFORMATION
  Report Type: 
  Country: None (occurrence: None)
  Receive Date: 20051222
  Receipt Date: 20050415
  Transmission Date: 20060501
  Serious: No
  Sender: FDA-Public Use
  Company Number: 05H-163-0297962-00

PATIENT

DRUGS (1)
  1. MORPHINE SULFATE INJ [Suspect]
     Dates: start: 20050401

REACTIONS (1)
  - RESPIRATORY DEPRESSION [None]
